FAERS Safety Report 8469317 (Version 4)
Quarter: 2013Q1

REPORT INFORMATION
  Report Type: Spontaneous
  Country: US (occurrence: US)
  Receive Date: 20120321
  Receipt Date: 20130131
  Transmission Date: 20140127
  Serious: Yes (Other)
  Sender: FDA-Public Use
  Company Number: US-PFIZER INC-2012071547

PATIENT
  Age: 87 Year
  Sex: Male
  Weight: 71.7 kg

DRUGS (7)
  1. ALPRAZOLAM [Suspect]
     Indication: INSOMNIA
     Dosage: 0.25 MG, AS NEEDED
     Route: 048
  2. ALPRAZOLAM [Suspect]
     Indication: ANXIETY
     Dosage: 0.5 MG, AS NEEDED
     Route: 048
  3. ALPRAZOLAM [Suspect]
     Dosage: 0.75 MG, AS NEEDED
     Route: 048
  4. ALPRAZOLAM [Suspect]
     Dosage: 1 MG, AS NEEDED
     Route: 048
  5. ALPRAZOLAM [Suspect]
     Dosage: 0.5 MG, 1X/DAY
     Route: 048
  6. ALPRAZOLAM [Suspect]
     Dosage: 0.5 MG, 2X/DAY
     Route: 048
  7. AMBIEN [Concomitant]
     Indication: INSOMNIA
     Dosage: 10 MG, DAILY

REACTIONS (5)
  - Panic attack [Unknown]
  - Blood cholesterol increased [Unknown]
  - Drug ineffective [Unknown]
  - Off label use [Unknown]
  - Drug ineffective for unapproved indication [Unknown]
